FAERS Safety Report 8443987-2 (Version None)
Quarter: 2012Q2

REPORT INFORMATION
  Report Type: 
  Country: None (occurrence: None)
  Receive Date: 20120618
  Receipt Date: 20120611
  Transmission Date: 20120825
  Serious: Yes (Death, Other)
  Sender: FDA-Public Use
  Company Number: PHHY2012DE030187

PATIENT
  Sex: Male
  Weight: 77 kg

DRUGS (3)
  1. BRISERIN N [Concomitant]
     Dosage: 1 DF, QD
     Dates: start: 20060301
  2. EXJADE [Suspect]
     Indication: MYELODYSPLASTIC SYNDROME
     Dosage: 1000 MG, DAILY
     Route: 048
     Dates: start: 20120102
  3. AMLODIPINE BESYLATE [Concomitant]
     Dosage: 1 DF, UNK
     Dates: start: 20060301

REACTIONS (2)
  - PULMONARY EMBOLISM [None]
  - CORONARY ARTERY DISEASE [None]
